FAERS Safety Report 4498884-4 (Version None)
Quarter: 2004Q4

REPORT INFORMATION
  Report Type: 
  Country: None (occurrence: None)
  Receive Date: 20041111
  Receipt Date: 20041101
  Transmission Date: 20050328
  Serious: Yes (Hospitalization)
  Sender: FDA-Public Use
  Company Number: AU-AMGEN-US097638

PATIENT
  Sex: Female
  Weight: 53 kg

DRUGS (3)
  1. NEUPOGEN [Suspect]
     Indication: AGRANULOCYTOSIS
     Dates: start: 20030312, end: 20040903
  2. CEPHALEXIN [Concomitant]
     Route: 048
     Dates: end: 20040826
  3. WARFARIN SODIUM [Concomitant]
     Route: 048
     Dates: start: 20031231, end: 20040630

REACTIONS (2)
  - MENINGITIS ASEPTIC [None]
  - MENINGITIS BACTERIAL [None]
